FAERS Safety Report 18355915 (Version 2)
Quarter: 2021Q1

REPORT INFORMATION
  Report Type: Spontaneous
  Country: IN (occurrence: IN)
  Receive Date: 20201007
  Receipt Date: 20210104
  Transmission Date: 20210419
  Serious: Yes (Hospitalization)
  Sender: FDA-Public Use
  Company Number: IN-PFIZER INC-2020089541

PATIENT
  Age: 48 Year
  Sex: Female

DRUGS (11)
  1. ONDET [Concomitant]
     Dosage: 2 ML
  2. CALCIUM CITRATE MALATE [Concomitant]
     Active Substance: CALCIUM CITRATE MALATE
     Dosage: UNK, 2X/DAY
  3. GRILINCTUS [AMMONIUM CHLORIDE;CHLORPHENAMINE MALEATE;DEXTROMETHORPHAN [Concomitant]
     Dosage: AT BED TIME
  4. OSTEOFOS [Concomitant]
     Dosage: UNK
  5. NORMAL SALINE [Concomitant]
     Active Substance: SODIUM CHLORIDE
     Dosage: 100 ML
  6. SHELCAL [CALCIUM CARBONATE;COLECALCIFEROL] [Concomitant]
     Dosage: UNK
  7. BETADINE [Concomitant]
     Active Substance: POVIDONE-IODINE
     Dosage: UNK, MWF 1?1?1
  8. LETROZ [Concomitant]
     Dosage: 2.5 MG, 1X/DAY
     Route: 048
  9. PALBACE [Suspect]
     Active Substance: PALBOCICLIB
     Indication: BREAST CANCER METASTATIC
     Dosage: 125 MG, CYCLIC (1X/DAY; ON 3 WEEKS, STOP FOR 7 DAYS; AFTER FOOD)
     Route: 048
     Dates: start: 20200122
  10. ZOLEDRONIC ACID. [Concomitant]
     Active Substance: ZOLEDRONIC ACID
     Dosage: 4 MG
  11. ZIPANT [Concomitant]
     Dosage: 40 MG

REACTIONS (6)
  - Mouth ulceration [Unknown]
  - Neoplasm progression [Unknown]
  - Nasal congestion [Unknown]
  - Dyspnoea [Unknown]
  - Oropharyngeal pain [Unknown]
  - Cough [Unknown]

NARRATIVE: CASE EVENT DATE: 2020
